FAERS Safety Report 9413176 (Version 3)
Quarter: 2013Q3

REPORT INFORMATION
  Report Type: Spontaneous
  Country: US (occurrence: None)
  Receive Date: 20130717
  Receipt Date: 20130828
  Transmission Date: 20140515
  Serious: Yes (Death)
  Sender: FDA-Public Use
  Company Number: ADR-2013UNK126

PATIENT
  Sex: 0

DRUGS (5)
  1. EFAVIRENZ [Suspect]
     Indication: ACQUIRED IMMUNODEFICIENCY SYNDROME
     Dosage: 1 COURSE + ORAL
     Route: 048
     Dates: start: 20120416, end: 20120930
  2. TRUVADA [Concomitant]
  3. KALETRA [Concomitant]
  4. ALUVIA [Concomitant]
  5. LPV/R [Concomitant]

REACTIONS (3)
  - Abortion induced [None]
  - Maternal exposure during pregnancy [None]
  - Pregnancy [None]
